FAERS Safety Report 14982319 (Version 1)
Quarter: 2018Q2

REPORT INFORMATION
  Report Type: Spontaneous
  Country: US (occurrence: US)
  Receive Date: 20180515
  Receipt Date: 20180515
  Transmission Date: 20180711
  Serious: No
  Sender: FDA-Public Use
  Company Number: None

PATIENT
  Age: 29 Year
  Sex: Male

DRUGS (1)
  1. COSENTYX [Suspect]
     Active Substance: SECUKINUMAB

REACTIONS (3)
  - Therapy cessation [None]
  - Disease recurrence [None]
  - Ill-defined disorder [None]

NARRATIVE: CASE EVENT DATE: 20180515
